FAERS Safety Report 15417569 (Version 2)
Quarter: 2018Q4

REPORT INFORMATION
  Report Type: Spontaneous
  Country: US (occurrence: US)
  Receive Date: 20180924
  Receipt Date: 20181008
  Transmission Date: 20190204
  Serious: No
  Sender: FDA-Public Use
  Company Number: US-SUNOVION-2018SUN003585

PATIENT
  Sex: Male
  Weight: 58.96 kg

DRUGS (5)
  1. DEPAKOTE [Concomitant]
     Active Substance: DIVALPROEX SODIUM
     Dosage: 250 MG, QD, THREE TABS EVERY 24 HRS
  2. DEPAKOTE [Concomitant]
     Active Substance: DIVALPROEX SODIUM
     Dosage: 250 MG, QD, THREE TABS EVERY 24 HRS
  3. OLANZAPINE. [Concomitant]
     Active Substance: OLANZAPINE
  4. LATUDA [Suspect]
     Active Substance: LURASIDONE HYDROCHLORIDE
     Indication: PARANOIA
     Dosage: 60 MG, QD, 20MG/AM 40MG/PM
     Route: 048
     Dates: start: 20180915
  5. LATUDA [Suspect]
     Active Substance: LURASIDONE HYDROCHLORIDE
     Indication: PSYCHOTIC DISORDER
     Dosage: 40 MG, QD
     Route: 048

REACTIONS (3)
  - Psychotic disorder [Unknown]
  - Product administration error [Unknown]
  - Off label use [Unknown]
